FAERS Safety Report 8261387-5 (Version None)
Quarter: 2012Q2

REPORT INFORMATION
  Report Type: 
  Country: None (occurrence: None)
  Receive Date: 20120405
  Receipt Date: 20120402
  Transmission Date: 20120825
  Serious: Yes (Other)
  Sender: FDA-Public Use
  Company Number: CA-PFIZER INC-2012034717

PATIENT
  Age: 72 Year
  Sex: Female
  Weight: 60 kg

DRUGS (7)
  1. ACTONEL [Concomitant]
     Dosage: 150 MG, MONTHLY
  2. ASPIRIN [Concomitant]
     Dosage: 325 MG, ALTERNATE DAY
  3. EZETIMIBE [Concomitant]
     Dosage: 10 MG, 1X/DAY
  4. CRESTOR [Concomitant]
     Dosage: 20 MG, 1X/DAY
  5. RABEPRAZOLE [Concomitant]
     Dosage: 20 MG, 1X/DAY
  6. DETROL LA [Suspect]
     Indication: URINARY TRACT INFECTION
     Dosage: UNK
     Dates: start: 20111201, end: 20120101
  7. METOPROLOL [Concomitant]
     Dosage: 50 MG, 1X/DAY

REACTIONS (1)
  - ANGINA PECTORIS [None]
